FAERS Safety Report 4564480-3 (Version None)
Quarter: 2005Q1

REPORT INFORMATION
  Report Type: 
  Country: None (occurrence: None)
  Receive Date: 20050128
  Receipt Date: 20050125
  Transmission Date: 20050727
  Serious: Yes (Death, Hospitalization)
  Sender: FDA-Public Use
  Company Number: US-BRISTOL-MYERS SQUIBB COMPANY-12837829

PATIENT
  Age: 66 Year
  Sex: Male
  Weight: 79 kg

DRUGS (4)
  1. CISPLATIN [Suspect]
     Indication: SMALL CELL LUNG CANCER STAGE UNSPECIFIED
     Route: 042
     Dates: start: 20010817, end: 20010817
  2. ETOPOSIDE [Suspect]
     Indication: SMALL CELL LUNG CANCER STAGE UNSPECIFIED
     Dosage: TX DATES 17-AUG-2001 - 19-AUG-2001
     Route: 042
     Dates: start: 20010819, end: 20010819
  3. OXYCODONE HCL [Concomitant]
     Indication: BACK PAIN
     Route: 048
     Dates: start: 20010828, end: 20010831
  4. OXYCOCET [Concomitant]
     Indication: PAIN
     Dosage: - 5/325 MG EVERY 2-3 HOURS
     Route: 048
     Dates: start: 20010816, end: 20010831

REACTIONS (7)
  - ASTHENIA [None]
  - BACK PAIN [None]
  - CONFUSIONAL STATE [None]
  - DEHYDRATION [None]
  - MALIGNANT NEOPLASM PROGRESSION [None]
  - OBSTRUCTION [None]
  - SMALL CELL LUNG CANCER STAGE UNSPECIFIED [None]
